FAERS Safety Report 7593932-7 (Version None)
Quarter: 2011Q3

REPORT INFORMATION
  Report Type: 
  Country: None (occurrence: None)
  Receive Date: 20110706
  Receipt Date: 20110627
  Transmission Date: 20111222
  Serious: Yes (Other)
  Sender: FDA-Public Use
  Company Number: US-AMGEN-USASP2011032833

PATIENT
  Age: 80 Year
  Sex: Female

DRUGS (4)
  1. PROLIA [Suspect]
     Indication: PRODUCT USED FOR UNKNOWN INDICATION
     Dosage: 60 MG, Q6MO
     Dates: start: 20110421
  2. VITAMIN A [Concomitant]
  3. FOLIC ACID [Concomitant]
  4. BENICAR [Concomitant]

REACTIONS (6)
  - SPINAL DISORDER [None]
  - PALPITATIONS [None]
  - BLOOD PRESSURE INCREASED [None]
  - PAIN IN JAW [None]
  - MUSCULOSKELETAL DISCOMFORT [None]
  - PAIN [None]
